FAERS Safety Report 7377019-4 (Version None)
Quarter: 2011Q1

REPORT INFORMATION
  Report Type: 
  Country: None (occurrence: None)
  Receive Date: 20110328
  Receipt Date: 20110314
  Transmission Date: 20110831
  Serious: No
  Sender: FDA-Public Use
  Company Number: US-BIOGENIDEC-2010BI042043

PATIENT
  Sex: Male

DRUGS (3)
  1. AVONEX [Concomitant]
     Route: 030
     Dates: start: 20091201
  2. AVONEX [Concomitant]
     Indication: MULTIPLE SCLEROSIS
     Route: 030
     Dates: start: 20010101
  3. TYSABRI [Suspect]
     Indication: MULTIPLE SCLEROSIS
     Route: 042
     Dates: start: 20091230

REACTIONS (5)
  - HYPERTENSION [None]
  - FATIGUE [None]
  - BLOOD GLUCOSE DECREASED [None]
  - HEADACHE [None]
  - ASTHENIA [None]
